FAERS Safety Report 20041441 (Version 1)
Quarter: 2021Q4

REPORT INFORMATION
  Report Type: Spontaneous
  Country: US (occurrence: US)
  Receive Date: 20211108
  Receipt Date: 20211108
  Transmission Date: 20220303
  Serious: Yes (Death)
  Sender: FDA-Public Use
  Company Number: US-drreddys-SPO/USA/21/0143370

PATIENT
  Age: 25 Year
  Sex: Male

DRUGS (1)
  1. ACCUTANE [Suspect]
     Active Substance: ISOTRETINOIN
     Indication: Product used for unknown indication
     Dosage: RMA ISSUE DATE:11 MAY 2021 12:00:00 AM,17 JUNE 2021 12:00:00 AM,14 JULY 2021 12:00:00 AM,11 AUGUST 2

REACTIONS (1)
  - Death [Fatal]
